APPROVED DRUG PRODUCT: VITAPED
Active Ingredient: ASCORBIC ACID; BIOTIN; CYANOCOBALAMIN; ERGOCALCIFEROL; FOLIC ACID; NIACINAMIDE; PANTOTHENIC ACID; PHYTONADIONE; PYRIDOXINE; RIBOFLAVIN; THIAMINE; VITAMIN A PALMITATE; VITAMIN E
Strength: N/A,80MG/VIAL;N/A,0.02MG/VIAL;N/A,0.001MG/VIAL;400 IU/10ML,N/A;N/A,0.14MG/VIAL;N/A,17MG/VIAL;N/A,5MG/VIAL;0.2MG/10ML,N/A;N/A,1MG/VIAL;N/A,1.4MG/VIAL;N/A,1.2MG/VIAL;EQ 2,300 UNITS BASE/10ML,N/A;7 IU/10ML,N/A
Dosage Form/Route: INJECTABLE;INJECTION
Application: N020176 | Product #001
Applicant: HOSPIRA INC
Approved: Dec 29, 1993 | RLD: No | RS: No | Type: DISCN